FAERS Safety Report 6614468-3 (Version None)
Quarter: 2010Q1

REPORT INFORMATION
  Report Type: 
  Country: None (occurrence: None)
  Receive Date: 20100304
  Receipt Date: 20100304
  Transmission Date: 20100710
  Serious: Yes (Hospitalization)
  Sender: FDA-Public Use
  Company Number: None

PATIENT
  Age: 92 Year
  Sex: Female
  Weight: 58.514 kg

DRUGS (1)
  1. DEMEROL [Suspect]
     Indication: PAIN
     Dosage: 25 MG ONCE IV
     Route: 042
     Dates: start: 20100113, end: 20100113

REACTIONS (3)
  - HYPOPNOEA [None]
  - PULSE ABSENT [None]
  - UNRESPONSIVE TO STIMULI [None]
